FAERS Safety Report 19686011 (Version 1)
Quarter: 2021Q3

REPORT INFORMATION
  Report Type: Spontaneous
  Country: US (occurrence: US)
  Receive Date: 20210811
  Receipt Date: 20210811
  Transmission Date: 20211014
  Serious: Yes (Hospitalization)
  Sender: FDA-Public Use
  Company Number: None

PATIENT
  Sex: Female

DRUGS (4)
  1. COSENTYX [Suspect]
     Active Substance: SECUKINUMAB
     Indication: PSORIATIC ARTHROPATHY
     Dosage: ?          OTHER DOSE:2 SYR;OTHER FREQUENCY:QM;?
     Route: 058
     Dates: start: 20190222
  2. IBUPROFEN. [Concomitant]
     Active Substance: IBUPROFEN
  3. LISINOPRIL. [Concomitant]
     Active Substance: LISINOPRIL
  4. ALLI [Concomitant]
     Active Substance: ORLISTAT

REACTIONS (9)
  - Psoriasis [None]
  - Cardiac failure congestive [None]
  - Spider naevus [None]
  - Multiple fractures [None]
  - Joint injury [None]
  - Arthralgia [None]
  - Retinal disorder [None]
  - Burns third degree [None]
  - Therapy interrupted [None]
